FAERS Safety Report 4764552-4 (Version None)
Quarter: 2005Q3

REPORT INFORMATION
  Report Type: 
  Country: None (occurrence: None)
  Receive Date: 20050909
  Receipt Date: 20050905
  Transmission Date: 20060218
  Serious: Yes (Disabling)
  Sender: FDA-Public Use
  Company Number: PHFR2005GB02991

PATIENT
  Age: 67 Year
  Sex: Male

DRUGS (14)
  1. FLUVASTATIN SODIUM [Suspect]
     Route: 065
  2. SIMVASTATIN [Concomitant]
     Indication: BLOOD CHOLESTEROL
     Dosage: 10 MG, QD
     Route: 065
  3. ASPIRIN [Concomitant]
     Dosage: 75 MG, QD
     Route: 065
  4. BISACODYL [Concomitant]
     Indication: CONSTIPATION
     Dosage: 5 MG, QD
     Route: 065
  5. AMIODARONE [Concomitant]
     Dosage: 100 MG, QD
     Route: 065
  6. GLUCOSAMINE [Concomitant]
     Dosage: 500 MG, BID
     Route: 065
  7. IPRATROPIUM BROMIDE [Concomitant]
     Dosage: 20 UG, TID
     Route: 065
  8. ALBUTEROL SULFATE HFA [Concomitant]
     Dosage: 400 UG, QID
  9. FINASTERIDE [Concomitant]
     Dosage: 5 MG, QD
     Route: 065
  10. ANGITIL - SLOW RELEASE [Concomitant]
     Indication: BLOOD PRESSURE INCREASED
     Dosage: 90 MG, BID
     Route: 065
  11. ZAFIRLUKAST [Concomitant]
     Dosage: 200 MG, QD
     Route: 065
  12. RABEPRAZOLE SODIUM [Concomitant]
     Dosage: 20 MG, QD
     Route: 065
  13. FLIXOTIDE [Concomitant]
     Dosage: 100 UG, TID
  14. MOVICOL [Concomitant]
     Dosage: 13.8 G, QD
     Route: 065

REACTIONS (1)
  - BALANCE DISORDER [None]
